FAERS Safety Report 4939235-8 (Version None)
Quarter: 2006Q1

REPORT INFORMATION
  Report Type: 
  Country: None (occurrence: None)
  Receive Date: 20060306
  Receipt Date: 20060221
  Transmission Date: 20060701
  Serious: Yes (Other)
  Sender: FDA-Public Use
  Company Number: 222413

PATIENT
  Age: 11 Year
  Sex: Female

DRUGS (1)
  1. SOMATROPIN (SOMATROPIN) POWDER FOR INJECTION [Suspect]
     Indication: TURNER'S SYNDROME
     Dosage: 0.048 MG/KG, QD,

REACTIONS (1)
  - PAPILLARY THYROID CANCER [None]
